FAERS Safety Report 18375437 (Version 3)
Quarter: 2020Q4

REPORT INFORMATION
  Report Type: Report from Study
  Country: US (occurrence: US)
  Receive Date: 20201012
  Receipt Date: 20201206
  Transmission Date: 20210114
  Serious: Yes (Hospitalization)
  Sender: FDA-Public Use
  Company Number: US-BAXTER-2020BAX020659

PATIENT
  Age: 11 Year
  Sex: Male
  Weight: 52.6 kg

DRUGS (20)
  1. CYCLOPHOSPHAMIDE FOR INJECTION, USP [Suspect]
     Active Substance: CYCLOPHOSPHAMIDE
     Indication: ACUTE LYMPHOCYTIC LEUKAEMIA
     Route: 042
  2. INCB018424 [Suspect]
     Active Substance: RUXOLITINIB
     Indication: ACUTE LYMPHOCYTIC LEUKAEMIA
     Dosage: TABLET, FIRST DOSE
     Route: 048
     Dates: start: 20190813
  3. INCB018424 [Suspect]
     Active Substance: RUXOLITINIB
     Dosage: TABLET, LAST DOSE PRIOR TO AES ALLERGIC REACTION RED MAN SYNDROME, FEVER AND PLATELET COUNT DECREASE
     Route: 048
     Dates: start: 20190826, end: 20190826
  4. MERCAPTOPURINE. [Suspect]
     Active Substance: MERCAPTOPURINE
     Indication: ACUTE LYMPHOCYTIC LEUKAEMIA
     Route: 048
  5. RANITIDINE. [Concomitant]
     Active Substance: RANITIDINE
     Indication: PRODUCT USED FOR UNKNOWN INDICATION
     Route: 065
  6. VANCOMYCIN [Concomitant]
     Active Substance: VANCOMYCIN
     Indication: PRODUCT USED FOR UNKNOWN INDICATION
     Route: 042
     Dates: start: 20190909, end: 20190910
  7. VINCRISTINE [Suspect]
     Active Substance: VINCRISTINE
     Indication: ACUTE LYMPHOCYTIC LEUKAEMIA
     Dosage: FIRST DOSE
     Route: 042
     Dates: start: 20190827
  8. CYTARABINE. [Suspect]
     Active Substance: CYTARABINE
     Dosage: LAST DOSE PRIOR TO AE NEUTROPHIL COUNT DECREASED
     Route: 042
  9. INCB018424 [Suspect]
     Active Substance: RUXOLITINIB
     Dosage: TABLET, LAST DOSE PRIOR TO AE NEUTROPHIL COUNT DECREASED
     Route: 048
  10. VINCRISTINE [Suspect]
     Active Substance: VINCRISTINE
     Dosage: LAST DOSE PRIOR TO AE^S OF ALLERGIC REACTION RED MAN SYNDROME, FEVER.
     Route: 042
     Dates: start: 20190903, end: 20190903
  11. METHOTREXATE. [Suspect]
     Active Substance: METHOTREXATE
     Dosage: LAST DOSE PRIOR TO AE^S OF ALLERGIC REACTION RED MAN SYNDROME, FEVER.
     Route: 037
     Dates: start: 20190903, end: 20190903
  12. METHOTREXATE. [Suspect]
     Active Substance: METHOTREXATE
     Dosage: LAST DOSE PRIOR TO AE^S OF PLATELET COUNT DECREASED AND NEUTROPHIL COUNT DECREASED
     Route: 037
  13. PEGASPARGASE [Suspect]
     Active Substance: PEGASPARGASE
     Indication: ACUTE LYMPHOCYTIC LEUKAEMIA
     Dosage: DOSE: 2500 IU/M2
     Route: 042
     Dates: start: 20190827
  14. MERCAPTOPURINE. [Suspect]
     Active Substance: MERCAPTOPURINE
     Dosage: LAST DOSE PRIOR TO ALL AE^S
     Route: 048
  15. METHOTREXATE. [Suspect]
     Active Substance: METHOTREXATE
     Indication: ACUTE LYMPHOCYTIC LEUKAEMIA
     Dosage: FIRST DOSE
     Route: 037
     Dates: start: 20190813
  16. PEGASPARGASE [Suspect]
     Active Substance: PEGASPARGASE
     Dosage: DOSE: 2500 IU/M2, LAST DOSE PRIOR TO AE^S OF ALLERGIC REACTION RED MAN SYNDROME, FEVER AND PLATELET
     Route: 042
     Dates: start: 20190827, end: 20190827
  17. PEGASPARGASE [Suspect]
     Active Substance: PEGASPARGASE
     Dosage: DOSE: 2500 IU/M2, LAST DOSE PRIOR TO AE NEUTROPHIL COUNT DECREASED
     Route: 042
  18. CYTARABINE. [Suspect]
     Active Substance: CYTARABINE
     Indication: ACUTE LYMPHOCYTIC LEUKAEMIA
     Dosage: FIRST DOSE
     Route: 042
     Dates: start: 20190813
  19. CYTARABINE. [Suspect]
     Active Substance: CYTARABINE
     Dosage: LAST DOSE PRIOR TO AE^S OF ALLERGIC REACTION RED MAN SYNDROME, FEVER AND PLATELET COUNT DECREASED
     Route: 042
     Dates: start: 20190823, end: 20190823
  20. VINCRISTINE [Suspect]
     Active Substance: VINCRISTINE
     Dosage: LAST DOSE PRIOR TO AE^S OF PLATELET COUNT DECREASED AND NEUTROPHIL COUNT DECREASED
     Route: 042

REACTIONS (4)
  - Platelet count decreased [Recovered/Resolved]
  - Red man syndrome [Recovered/Resolved]
  - Pyrexia [Recovered/Resolved]
  - Neutrophil count decreased [Recovered/Resolved]

NARRATIVE: CASE EVENT DATE: 20190817
